FAERS Safety Report 7363614-5 (Version None)
Quarter: 2011Q1

REPORT INFORMATION
  Report Type: 
  Country: None (occurrence: None)
  Receive Date: 20110321
  Receipt Date: 20110311
  Transmission Date: 20110831
  Serious: Yes (Hospitalization, Other)
  Sender: FDA-Public Use
  Company Number: US-PFIZER INC-2006031829

PATIENT
  Sex: Male

DRUGS (2)
  1. NEURONTIN [Suspect]
     Indication: PAIN
     Dosage: 300 MG, 1X/DAY
     Route: 048
     Dates: start: 20030101
  2. NEURONTIN [Suspect]
     Indication: CONVULSION
     Dosage: 300 MG, 3X/DAY
     Dates: start: 20040720, end: 20040730

REACTIONS (5)
  - HOMICIDAL IDEATION [None]
  - ACCIDENTAL OVERDOSE [None]
  - PARANOIA [None]
  - HALLUCINATION [None]
  - SUICIDAL IDEATION [None]
